FAERS Safety Report 14559525 (Version 2)
Quarter: 2018Q1

REPORT INFORMATION
  Report Type: Spontaneous
  Country: IT (occurrence: IT)
  Receive Date: 20180221
  Receipt Date: 20180308
  Transmission Date: 20180509
  Serious: Yes (Other)
  Sender: FDA-Public Use
  Company Number: IT-EMD SERONO-E2B_90022374

PATIENT
  Age: 23 Year
  Sex: Male

DRUGS (3)
  1. REBIF [Suspect]
     Active Substance: INTERFERON BETA-1A
     Indication: RELAPSING-REMITTING MULTIPLE SCLEROSIS
     Dosage: 0.5 ML CARTRIDGE
     Route: 058
     Dates: start: 20170814, end: 20171024
  2. REBIF [Suspect]
     Active Substance: INTERFERON BETA-1A
     Dosage: DOSE REDUCED
  3. XARENEL [Concomitant]
     Indication: VITAMIN D DEFICIENCY
     Route: 048

REACTIONS (3)
  - Hepatic enzyme increased [Recovering/Resolving]
  - Pyrexia [Recovering/Resolving]
  - Injection site pain [Recovering/Resolving]

NARRATIVE: CASE EVENT DATE: 20171018
